FAERS Safety Report 12877286 (Version 1)
Quarter: 2016Q4

REPORT INFORMATION
  Report Type: Spontaneous
  Country: DE (occurrence: DE)
  Receive Date: 20161024
  Receipt Date: 20161024
  Transmission Date: 20170207
  Serious: Yes (Death)
  Sender: FDA-Public Use
  Company Number: DE-HQ SPECIALTY-DE-2016INT000915

PATIENT

DRUGS (7)
  1. IFOSFAMIDE. [Suspect]
     Active Substance: IFOSFAMIDE
     Indication: GANGLIONEUROBLASTOMA
     Dosage: 2X
  2. CISPLATIN. [Suspect]
     Active Substance: CISPLATIN
     Indication: GANGLIONEUROBLASTOMA
     Dosage: 2X
  3. VINDESINE [Suspect]
     Active Substance: VINDESINE
     Indication: GANGLIONEUROBLASTOMA
     Dosage: 2X
  4. DOXORUBICINE                       /00330901/ [Suspect]
     Active Substance: DOXORUBICIN
     Indication: GANGLIONEUROBLASTOMA
     Dosage: 2X
  5. VINCRISTINE [Suspect]
     Active Substance: VINCRISTINE
     Indication: GANGLIONEUROBLASTOMA
     Dosage: 2X
  6. DACARBAZINE. [Suspect]
     Active Substance: DACARBAZINE
     Indication: GANGLIONEUROBLASTOMA
     Dosage: 2X
  7. ETOPOSIDE. [Suspect]
     Active Substance: ETOPOSIDE
     Indication: GANGLIONEUROBLASTOMA
     Dosage: 2X

REACTIONS (2)
  - Cardiac failure [Fatal]
  - Pulmonary oedema [Fatal]
